FAERS Safety Report 21709292 (Version 2)
Quarter: 2023Q1

REPORT INFORMATION
  Report Type: Spontaneous
  Country: US (occurrence: None)
  Receive Date: 20221210
  Receipt Date: 20230206
  Transmission Date: 20230417
  Serious: Yes (Death)
  Sender: FDA-Public Use
  Company Number: 2022A402284

PATIENT
  Age: 28999 Day
  Sex: Female

DRUGS (1)
  1. SYMBICORT [Suspect]
     Active Substance: BUDESONIDE\FORMOTEROL FUMARATE DIHYDRATE
     Dosage: UG UNKNOWN
     Route: 055

REACTIONS (6)
  - Drug ineffective [Fatal]
  - Chest discomfort [Not Recovered/Not Resolved]
  - Device use issue [Unknown]
  - Device information output issue [Not Recovered/Not Resolved]
  - Incorrect dose administered by device [Unknown]
  - Device failure [Unknown]

NARRATIVE: CASE EVENT DATE: 20221205
